FAERS Safety Report 19566647 (Version 1)
Quarter: 2021Q3

REPORT INFORMATION
  Report Type: Report from Study
  Country: DE (occurrence: DE)
  Receive Date: 20210715
  Receipt Date: 20210715
  Transmission Date: 20211014
  Serious: Yes (Hospitalization, Other)
  Sender: FDA-Public Use
  Company Number: DE-TAKEDA-2021TUS039374

PATIENT
  Age: 2 Year
  Sex: Male

DRUGS (20)
  1. TEDUGLUTIDE [Suspect]
     Active Substance: TEDUGLUTIDE
     Indication: SHORT-BOWEL SYNDROME
     Dosage: 0.14 MILLIGRAM (0.0182MG/KG), QD
     Route: 065
     Dates: start: 20191210, end: 20200924
  2. TEDUGLUTIDE [Suspect]
     Active Substance: TEDUGLUTIDE
     Indication: SHORT-BOWEL SYNDROME
     Dosage: 0.14 MILLIGRAM (0.0182MG/KG), QD
     Route: 065
     Dates: start: 20191210, end: 20200924
  3. TEDUGLUTIDE [Suspect]
     Active Substance: TEDUGLUTIDE
     Indication: SHORT-BOWEL SYNDROME
     Dosage: 0.14 MILLIGRAM (0.0182MG/KG), QD
     Route: 065
     Dates: start: 20191210, end: 20200924
  4. TEDUGLUTIDE [Suspect]
     Active Substance: TEDUGLUTIDE
     Dosage: 0.18 MILLIGRAM (0.0182MG/KG), QD
     Route: 065
     Dates: start: 20200925, end: 20201119
  5. TEDUGLUTIDE [Suspect]
     Active Substance: TEDUGLUTIDE
     Dosage: 0.20 MILLIGRAM (0.1880MG/KG), QD
     Route: 065
     Dates: start: 20201120, end: 20210114
  6. TEDUGLUTIDE [Suspect]
     Active Substance: TEDUGLUTIDE
     Dosage: 0.22 MILLIGRAM (0.1864MG/KG), QD
     Route: 065
     Dates: start: 20210115
  7. TEDUGLUTIDE [Suspect]
     Active Substance: TEDUGLUTIDE
     Indication: SHORT-BOWEL SYNDROME
     Dosage: 0.14 MILLIGRAM (0.0182MG/KG), QD
     Route: 065
     Dates: start: 20191210, end: 20200924
  8. TEDUGLUTIDE [Suspect]
     Active Substance: TEDUGLUTIDE
     Dosage: 0.20 MILLIGRAM (0.1880MG/KG), QD
     Route: 065
     Dates: start: 20201120, end: 20210114
  9. VITADRAL [Concomitant]
     Indication: SUPPLEMENTATION THERAPY
     Dosage: 25 GTTS, QD
     Route: 048
     Dates: start: 20200925
  10. URSOFALK [Concomitant]
     Active Substance: URSODIOL
     Indication: LIVER DISORDER
     Dosage: 75 MILLIGRAM, BID
     Route: 048
     Dates: start: 20190805, end: 20200330
  11. TEDUGLUTIDE [Suspect]
     Active Substance: TEDUGLUTIDE
     Dosage: 0.18 MILLIGRAM (0.0182MG/KG), QD
     Route: 065
     Dates: start: 20200925, end: 20201119
  12. TEDUGLUTIDE [Suspect]
     Active Substance: TEDUGLUTIDE
     Dosage: 0.18 MILLIGRAM (0.0182MG/KG), QD
     Route: 065
     Dates: start: 20200925, end: 20201119
  13. TEDUGLUTIDE [Suspect]
     Active Substance: TEDUGLUTIDE
     Dosage: 0.20 MILLIGRAM (0.1880MG/KG), QD
     Route: 065
     Dates: start: 20201120, end: 20210114
  14. TEDUGLUTIDE [Suspect]
     Active Substance: TEDUGLUTIDE
     Dosage: 0.22 MILLIGRAM (0.1864MG/KG), QD
     Route: 065
     Dates: start: 20210115
  15. VEDROP [Concomitant]
     Indication: SUPPLEMENTATION THERAPY
     Dosage: 2 MILLILITER, DAILY ONLY ON SA/SU
     Route: 048
     Dates: start: 20210124
  16. SILYBUM MARIANUM [Concomitant]
     Active Substance: DIETARY SUPPLEMENT\HERBALS\MILK THISTLE
     Indication: SUPPLEMENTATION THERAPY
     Dosage: 1.0 DOSAGE FORM
     Route: 048
     Dates: start: 20200330
  17. TEDUGLUTIDE [Suspect]
     Active Substance: TEDUGLUTIDE
     Dosage: 0.20 MILLIGRAM (0.1880MG/KG), QD
     Route: 065
     Dates: start: 20201120, end: 20210114
  18. TEDUGLUTIDE [Suspect]
     Active Substance: TEDUGLUTIDE
     Dosage: 0.22 MILLIGRAM (0.1864MG/KG), QD
     Route: 065
     Dates: start: 20210115
  19. TEDUGLUTIDE [Suspect]
     Active Substance: TEDUGLUTIDE
     Dosage: 0.18 MILLIGRAM (0.0182MG/KG), QD
     Route: 065
     Dates: start: 20200925, end: 20201119
  20. TEDUGLUTIDE [Suspect]
     Active Substance: TEDUGLUTIDE
     Dosage: 0.22 MILLIGRAM (0.1864MG/KG), QD
     Route: 065
     Dates: start: 20210115

REACTIONS (1)
  - Device related sepsis [Recovered/Resolved]

NARRATIVE: CASE EVENT DATE: 20210119
